FAERS Safety Report 10647288 (Version 1)
Quarter: 2014Q4

REPORT INFORMATION
  Report Type: Spontaneous
  Country: CN (occurrence: CN)
  Receive Date: 20141211
  Receipt Date: 20141211
  Transmission Date: 20150529
  Serious: Yes (Hospitalization)
  Sender: FDA-Public Use
  Company Number: CN-BAXTER-2014BAX072005

PATIENT
  Age: 56 Year
  Sex: Female

DRUGS (15)
  1. AMIODARONE [Suspect]
     Active Substance: AMIODARONE
     Indication: VENTRICULAR TACHYCARDIA
  2. PROPAFENONE. [Suspect]
     Active Substance: PROPAFENONE
     Indication: VENTRICULAR TACHYCARDIA
  3. PROPAFENONE. [Suspect]
     Active Substance: PROPAFENONE
     Indication: VENTRICULAR FIBRILLATION
  4. ESMOLOL HYDROCHLORIDE 10MG/ML [Suspect]
     Active Substance: ESMOLOL HYDROCHLORIDE
     Indication: VENTRICULAR TACHYCARDIA
     Route: 065
  5. LIDOCAINE. [Suspect]
     Active Substance: LIDOCAINE
     Indication: VENTRICULAR TACHYCARDIA
  6. ESMOLOL HYDROCHLORIDE 10MG/ML [Suspect]
     Active Substance: ESMOLOL HYDROCHLORIDE
     Indication: VENTRICULAR FIBRILLATION
  7. ESMOLOL HYDROCHLORIDE 10MG/ML [Suspect]
     Active Substance: ESMOLOL HYDROCHLORIDE
     Indication: OFF LABEL USE
  8. AMIODARONE [Suspect]
     Active Substance: AMIODARONE
     Indication: VENTRICULAR FIBRILLATION
  9. LIDOCAINE. [Suspect]
     Active Substance: LIDOCAINE
     Indication: TREATMENT FAILURE
     Route: 065
  10. VERAPAMIL [Suspect]
     Active Substance: VERAPAMIL HYDROCHLORIDE
     Indication: VENTRICULAR TACHYCARDIA
  11. AMIODARONE [Suspect]
     Active Substance: AMIODARONE
     Indication: TREATMENT FAILURE
     Route: 065
  12. VERAPAMIL [Suspect]
     Active Substance: VERAPAMIL HYDROCHLORIDE
     Indication: TREATMENT FAILURE
     Route: 065
  13. LIDOCAINE. [Suspect]
     Active Substance: LIDOCAINE
     Indication: VENTRICULAR FIBRILLATION
  14. PROPAFENONE. [Suspect]
     Active Substance: PROPAFENONE
     Indication: TREATMENT FAILURE
     Route: 065
  15. VERAPAMIL [Suspect]
     Active Substance: VERAPAMIL HYDROCHLORIDE
     Indication: VENTRICULAR FIBRILLATION

REACTIONS (1)
  - Treatment failure [Recovered/Resolved]

NARRATIVE: CASE EVENT DATE: 200903
